FAERS Safety Report 8157440-7 (Version None)
Quarter: 2012Q1

REPORT INFORMATION
  Report Type: 
  Country: None (occurrence: None)
  Receive Date: 20120222
  Receipt Date: 20120214
  Transmission Date: 20120608
  Serious: Yes (Hospitalization)
  Sender: FDA-Public Use
  Company Number: DE-B.I. PHARMACEUTICALS,INC./RIDGEFIELD-2012-DE-00479DE

PATIENT
  Sex: Male
  Weight: 60 kg

DRUGS (1)
  1. SPIRIVA [Suspect]
     Dosage: 6 ANZ
     Route: 048
     Dates: start: 20120214

REACTIONS (1)
  - MEDICATION ERROR [None]
